FAERS Safety Report 12411224 (Version 3)
Quarter: 2016Q4

REPORT INFORMATION
  Report Type: Report from Study
  Country: DE (occurrence: DE)
  Receive Date: 20160527
  Receipt Date: 20161223
  Transmission Date: 20170207
  Serious: Yes (Death)
  Sender: FDA-Public Use
  Company Number: DE-ROCHE-1765373

PATIENT
  Age: 52 Year
  Sex: Male
  Weight: 98 kg

DRUGS (15)
  1. CELEBREX [Concomitant]
     Active Substance: CELECOXIB
     Indication: RHEUMATOID ARTHRITIS
     Route: 048
  2. METOHEXAL [Concomitant]
     Active Substance: METOPROLOL SUCCINATE
     Route: 065
  3. TILIDIN [Concomitant]
     Active Substance: NALOXONE HYDROCHLORIDE\TILIDINE HYDROCHLORIDE
     Indication: BACK PAIN
     Dosage: UP TO THREE TIMES PER DAY
     Route: 048
  4. PREDNISOLON [Concomitant]
     Active Substance: PREDNISOLONE
     Indication: RHEUMATOID ARTHRITIS
     Route: 048
  5. AMINEURIN [Concomitant]
     Active Substance: AMITRIPTYLINE HYDROCHLORIDE
     Route: 065
  6. AMINEURIN [Concomitant]
     Active Substance: AMITRIPTYLINE HYDROCHLORIDE
  7. VIGANTOLETTEN [Concomitant]
     Active Substance: CHOLECALCIFEROL
     Route: 065
  8. ALENDRONAT [Concomitant]
     Active Substance: ALENDRONATE SODIUM
     Indication: OSTEOPOROSIS
     Route: 048
  9. FOLIC ACID. [Concomitant]
     Active Substance: FOLIC ACID
     Route: 065
  10. METHOTREXATE. [Suspect]
     Active Substance: METHOTREXATE
     Indication: RHEUMATOID ARTHRITIS
     Route: 058
  11. DELIX (GERMANY) [Concomitant]
     Route: 065
  12. TOCILIZUMAB [Suspect]
     Active Substance: TOCILIZUMAB
     Indication: RHEUMATOID ARTHRITIS
     Dosage: ON 07/JAN/2015, 11/MAR/2015 AND 06/MAY/2015, HE RECIEVED SAME DOSE.
     Route: 042
     Dates: start: 20141016, end: 20150506
  13. NOVALGIN [Concomitant]
     Active Substance: METAMIZOLE SODIUM
     Indication: BACK PAIN
     Dosage: AS REQUIRED
     Route: 048
  14. AMLODIPIN [Concomitant]
     Active Substance: AMLODIPINE BESYLATE
     Route: 065
  15. PANTOPRAZOL [Concomitant]
     Active Substance: PANTOPRAZOLE SODIUM
     Route: 065

REACTIONS (2)
  - Respiratory tract infection [Recovered/Resolved]
  - Renal cell carcinoma [Fatal]

NARRATIVE: CASE EVENT DATE: 201508
